FAERS Safety Report 7060057-9 (Version None)
Quarter: 2010Q4

REPORT INFORMATION
  Report Type: 
  Country: None (occurrence: None)
  Receive Date: 20101025
  Receipt Date: 20100819
  Transmission Date: 20110411
  Serious: No
  Sender: FDA-Public Use
  Company Number: US-BRISTOL-MYERS SQUIBB COMPANY-15246713

PATIENT
  Age: 61 Year
  Sex: Female

DRUGS (2)
  1. BUSPAR [Suspect]
  2. BUSPIRONE HCL [Suspect]

REACTIONS (2)
  - ANXIETY [None]
  - DRUG INEFFECTIVE [None]
